FAERS Safety Report 5060900-9 (Version None)
Quarter: 2006Q2

REPORT INFORMATION
  Report Type: 
  Country: None (occurrence: None)
  Receive Date: 20060630
  Receipt Date: 20050621
  Transmission Date: 20061013
  Serious: Yes (Other)
  Sender: FDA-Public Use
  Company Number: 2005091926

PATIENT
  Sex: Female
  Weight: 69.4003 kg

DRUGS (4)
  1. NICOTROL [Suspect]
     Indication: SMOKING CESSATION THERAPY
     Dosage: 6-8 CARTRIDGES DAILY, INHALATION
     Route: 055
     Dates: start: 19990101
  2. ALPRAZOLAM [Concomitant]
  3. TRAZODONE HCL [Concomitant]
  4. DRUG UNSPECIFIED [Concomitant]

REACTIONS (5)
  - DEPENDENCE [None]
  - GINGIVAL INFECTION [None]
  - GINGIVAL PAIN [None]
  - MALAISE [None]
  - MEDICATION ERROR [None]
